FAERS Safety Report 12550670 (Version 1)
Quarter: 2016Q3

REPORT INFORMATION
  Report Type: Report from Study
  Country: US (occurrence: US)
  Receive Date: 20160712
  Receipt Date: 20160712
  Transmission Date: 20161109
  Serious: Yes (Other)
  Sender: FDA-Public Use
  Company Number: US-ABBVIE-16P-163-1671124-00

PATIENT
  Age: 41 Year
  Sex: Female

DRUGS (8)
  1. LUPRON DEPOT [Suspect]
     Active Substance: LEUPROLIDE ACETATE
     Indication: ENDOMETRIOSIS
     Route: 030
     Dates: start: 2004
  2. LUPRON DEPOT [Suspect]
     Active Substance: LEUPROLIDE ACETATE
     Indication: OVARIAN CYST
     Route: 030
     Dates: start: 2012
  3. FISH OIL [Concomitant]
     Active Substance: FISH OIL
     Indication: SUPPLEMENTATION THERAPY
     Dosage: DAILY
     Route: 048
  4. PROBIOTIC ACIDOPHILUS [Concomitant]
     Active Substance: LACTOBACILLUS ACIDOPHILUS
     Indication: PROBIOTIC THERAPY
     Dosage: DAILY
     Route: 048
  5. LUPRON DEPOT [Suspect]
     Active Substance: LEUPROLIDE ACETATE
     Indication: UTERINE LEIOMYOMA
     Route: 030
     Dates: start: 2007
  6. LUPRON DEPOT [Suspect]
     Active Substance: LEUPROLIDE ACETATE
     Route: 030
     Dates: start: 20160701
  7. MULTIVITAMIN [Concomitant]
     Active Substance: VITAMINS
     Indication: VITAMIN SUPPLEMENTATION
     Route: 048
  8. MINASTRIN 24 FE [Suspect]
     Active Substance: ETHINYL ESTRADIOL\NORETHINDRONE ACETATE
     Indication: PRODUCT USED FOR UNKNOWN INDICATION
     Route: 065

REACTIONS (25)
  - Chronic sinusitis [Recovering/Resolving]
  - Uterine leiomyoma [Not Recovered/Not Resolved]
  - Amenorrhoea [Recovered/Resolved]
  - Ankle fracture [Recovered/Resolved]
  - Hypersensitivity [Recovered/Resolved]
  - Endometriosis [Not Recovered/Not Resolved]
  - Ovarian cyst [Not Recovered/Not Resolved]
  - Respiratory tract infection [Recovering/Resolving]
  - Fatigue [Not Recovered/Not Resolved]
  - Pelvic pain [Recovered/Resolved]
  - Wrist fracture [Recovered/Resolved]
  - Ligament rupture [Recovered/Resolved]
  - Hypothyroidism [Not Recovered/Not Resolved]
  - Nasopharyngitis [Recovered/Resolved]
  - Endometriosis [Not Recovered/Not Resolved]
  - Amenorrhoea [Recovered/Resolved]
  - Uterine enlargement [Recovering/Resolving]
  - Uterine leiomyoma [Not Recovered/Not Resolved]
  - Ovarian cyst [Not Recovered/Not Resolved]
  - Nasopharyngitis [Recovered/Resolved]
  - Weight increased [Recovering/Resolving]
  - Breast enlargement [Recovering/Resolving]
  - Sinusitis [Recovered/Resolved]
  - Weight decreased [Recovering/Resolving]
  - Weight decreased [Recovering/Resolving]

NARRATIVE: CASE EVENT DATE: 2004
